FAERS Safety Report 9439147 (Version 3)
Quarter: 2013Q4

REPORT INFORMATION
  Report Type: Spontaneous
  Country: US (occurrence: US)
  Receive Date: 20130802
  Receipt Date: 20131018
  Transmission Date: 20140711
  Serious: Yes (Other)
  Sender: FDA-Public Use
  Company Number: US-ASTRAZENECA-2013SE56905

PATIENT
  Age: 75 Year
  Sex: Female
  Weight: 77.1 kg

DRUGS (11)
  1. PULMICORT FLEXHALER [Suspect]
     Indication: ASTHMA
     Route: 055
     Dates: start: 2007
  2. GLIPIZIDE [Concomitant]
     Indication: DIABETES MELLITUS
  3. XARELTO [Concomitant]
     Indication: ARRHYTHMIA
  4. AMLODIPINE DESYLATE [Concomitant]
     Indication: HYPERTENSION
  5. PRAVASTATIN [Concomitant]
     Indication: BLOOD CHOLESTEROL INCREASED
  6. SERTRALINE [Concomitant]
     Indication: ANXIETY
  7. FLECAINIDE [Concomitant]
     Indication: FOETAL HEART RATE ABNORMAL
  8. BISOPROLOL FUMURATE [Concomitant]
     Indication: HEART RATE ABNORMAL
  9. VIT D [Concomitant]
  10. BIOTIN [Concomitant]
     Indication: ALOPECIA
  11. PROAIR [Concomitant]
     Dosage: PRN

REACTIONS (13)
  - Myocardial infarction [Unknown]
  - Nasal congestion [Unknown]
  - Increased upper airway secretion [Unknown]
  - Mouth breathing [Unknown]
  - Hypertension [Unknown]
  - Arrhythmia [Unknown]
  - Alopecia [Unknown]
  - Headache [Unknown]
  - Dysphonia [Unknown]
  - Throat irritation [Unknown]
  - Insomnia [Unknown]
  - Circumstance or information capable of leading to medication error [Unknown]
  - Drug dose omission [Unknown]
